FAERS Safety Report 24439099 (Version 3)
Quarter: 2024Q4

REPORT INFORMATION
  Report Type: Spontaneous
  Country: SE (occurrence: SE)
  Receive Date: 20241015
  Receipt Date: 20241202
  Transmission Date: 20250115
  Serious: Yes (Other)
  Sender: AMGEN
  Company Number: SE-AMGEN-SWESP2024200823

PATIENT
  Sex: Female

DRUGS (8)
  1. KYPROLIS [Suspect]
     Active Substance: CARFILZOMIB
     Indication: Plasma cell myeloma
     Dosage: 40 MILLIGRAM, QWK QWK (ONCE/WEEK FOR THREE WEEKS IN EACH TREAMTENT) (40 MG OR 20 MG/SQ.M))
     Route: 065
  2. KYPROLIS [Suspect]
     Active Substance: CARFILZOMIB
     Dosage: 140 MILLIGRAM, QWK QWK (ONCE/WEEK FOR THREE WEEKS IN EACH TREAMTENT) (140 MG I.E. 70 MG/SQ.M.)
     Route: 065
  3. DEXAMETHASONE [Suspect]
     Active Substance: DEXAMETHASONE
     Indication: Plasma cell myeloma
     Dosage: UNK
     Route: 065
  4. CYCLOPHOSPHAMIDE [Suspect]
     Active Substance: CYCLOPHOSPHAMIDE
     Indication: Plasma cell myeloma
     Dosage: UNK
     Route: 065
  5. LOSARTAN [Concomitant]
     Active Substance: LOSARTAN
     Indication: Hypotension
     Dosage: 12.5 MILLIGRAM (12.5 MG X1)
     Dates: start: 202403
  6. ACYCLOVIR [Concomitant]
     Active Substance: ACYCLOVIR
     Indication: Herpes zoster
     Dosage: 400 MILLIGRAM (400 MG 1 X 2)
     Dates: start: 202405
  7. GABAPENTIN [Concomitant]
     Active Substance: GABAPENTIN
     Indication: Neuralgia
     Dosage: 100 MILLIGRAM (2+0+1+0) AND 300 MG 1+2+1+0
     Dates: start: 202401
  8. POTASSIUM [Concomitant]
     Active Substance: POTASSIUM
     Dosage: UNK
     Route: 065

REACTIONS (2)
  - Haemolysis [Recovered/Resolved]
  - Off label use [Unknown]
